FAERS Safety Report 16011068 (Version 1)
Quarter: 2019Q1

REPORT INFORMATION
  Report Type: Spontaneous
  Country: ES (occurrence: ES)
  Receive Date: 20190227
  Receipt Date: 20190227
  Transmission Date: 20190418
  Serious: Yes (Other)
  Sender: FDA-Public Use
  Company Number: ES-TEVA-2019-ES-1015924

PATIENT
  Age: 60 Year
  Sex: Male

DRUGS (4)
  1. FLUOXETINA 20 MG 60 COMPRIMIDOS [Concomitant]
     Indication: ADJUSTMENT DISORDER WITH DEPRESSED MOOD
     Dosage: 10 MILLIGRAM DAILY;
     Route: 048
     Dates: start: 20190130
  2. DIAZEPAM 5 MG 40 COMPRIMIDOS [Concomitant]
     Indication: ARTHRALGIA
     Dosage: 5 MILLIGRAM DAILY;
     Route: 048
     Dates: start: 20180120
  3. RANITIDINA RATIO 150 MG COMPRIMIDOS RECUBIERTOS CON PELICULA EFG , 28 [Concomitant]
     Indication: PRODUCT USED FOR UNKNOWN INDICATION
     Dosage: 150 MILLIGRAM DAILY;
     Route: 048
     Dates: start: 20120816
  4. TOPIRAMATO (7245A) [Suspect]
     Active Substance: TOPIRAMATE
     Indication: HEADACHE
     Route: 048
     Dates: start: 20190203

REACTIONS (2)
  - Renal pain [Recovering/Resolving]
  - Renal colic [Recovering/Resolving]

NARRATIVE: CASE EVENT DATE: 20190203
